FAERS Safety Report 12062856 (Version 1)
Quarter: 2016Q1

REPORT INFORMATION
  Report Type: Spontaneous
  Country: US (occurrence: US)
  Receive Date: 20160210
  Receipt Date: 20160210
  Transmission Date: 20160526
  Serious: No
  Sender: FDA-Public Use
  Company Number: US-BIOGEN-2013BI040317

PATIENT
  Sex: Female

DRUGS (2)
  1. AVONEX [Suspect]
     Active Substance: INTERFERON BETA-1A
     Indication: MULTIPLE SCLEROSIS
     Route: 030
     Dates: start: 19970301
  2. AVONEX [Suspect]
     Active Substance: INTERFERON BETA-1A
     Route: 030
     Dates: start: 20060815

REACTIONS (9)
  - Multiple sclerosis relapse [Unknown]
  - Pyrexia [Not Recovered/Not Resolved]
  - Vomiting [Unknown]
  - Sinus disorder [Unknown]
  - Musculoskeletal disorder [Recovered/Resolved with Sequelae]
  - Gait disturbance [Unknown]
  - Viral infection [Unknown]
  - Ear discomfort [Unknown]
  - Fatigue [Unknown]
